FAERS Safety Report 9713423 (Version 3)
Quarter: 2014Q1

REPORT INFORMATION
  Report Type: Spontaneous
  Country: DE (occurrence: DE)
  Receive Date: 20131126
  Receipt Date: 20140316
  Transmission Date: 20141002
  Serious: Yes (Death)
  Sender: FDA-Public Use
  Company Number: DE-JNJFOC-20131113960

PATIENT
  Age: 69 Year
  Sex: Female
  Weight: 75 kg

DRUGS (6)
  1. XARELTO [Suspect]
     Indication: PRODUCT USED FOR UNKNOWN INDICATION
     Route: 048
     Dates: start: 201209
  2. MIRTAZAPIN [Concomitant]
     Route: 065
  3. XIMOVAN [Concomitant]
     Route: 065
  4. QUERTO [Concomitant]
     Route: 065
  5. XANEF [Concomitant]
     Route: 065
  6. IMIGRAN [Concomitant]
     Route: 065

REACTIONS (4)
  - Cerebral haemorrhage [Fatal]
  - Headache [Fatal]
  - Arrhythmia [Fatal]
  - Myocardial infarction [Fatal]
